FAERS Safety Report 8179030-2 (Version None)
Quarter: 2012Q1

REPORT INFORMATION
  Report Type: 
  Country: None (occurrence: None)
  Receive Date: 20120302
  Receipt Date: 20120227
  Transmission Date: 20120608
  Serious: Yes (Life-Threatening, Other)
  Sender: FDA-Public Use
  Company Number: FR-ROCHE-730473

PATIENT
  Sex: Female
  Weight: 60 kg

DRUGS (7)
  1. DESLORATADINE [Concomitant]
  2. DEXCHLORPHENIRAMINE MALEATE [Concomitant]
  3. ALUMINUM HYDROXIDE AND MAGNESIUM TRISILICATE [Concomitant]
     Dosage: TDD REPORTED AS PRN
  4. IMODIUM [Concomitant]
     Dosage: TDD REPORTED AS PRN
  5. VEMURAFENIB [Suspect]
     Indication: METASTATIC MALIGNANT MELANOMA
     Dosage: LAST DOSE PRIOR TO SAE: 26 AUGUST 2010.
     Route: 048
  6. HIDROXIZIN [Concomitant]
  7. BETAMETHASONE [Concomitant]
     Dosage: 1 APPLICATION

REACTIONS (2)
  - SQUAMOUS CELL CARCINOMA OF SKIN [None]
  - MALIGNANT MELANOMA [None]
